FAERS Safety Report 5056229-5 (Version None)
Quarter: 2006Q3

REPORT INFORMATION
  Report Type: 
  Country: None (occurrence: None)
  Receive Date: 20060717
  Receipt Date: 20060714
  Transmission Date: 20061208
  Serious: Yes (Life-Threatening)
  Sender: FDA-Public Use
  Company Number: 2006-145292-NL

PATIENT
  Age: 38 Year
  Sex: Male

DRUGS (2)
  1. MIRTAZAPINE [Suspect]
     Indication: DEPRESSION
     Dosage: 15 MG
     Route: 048
     Dates: start: 20060401, end: 20060502
  2. CO-TRIMOXAZOLE [Suspect]
     Indication: LUNG INFECTION
     Route: 048
     Dates: start: 20060401, end: 20060502

REACTIONS (3)
  - AKATHISIA [None]
  - DEMENTIA [None]
  - HYPONATRAEMIA [None]
